FAERS Safety Report 8534486-8 (Version None)
Quarter: 2012Q3

REPORT INFORMATION
  Report Type: 
  Country: None (occurrence: None)
  Receive Date: 20120712
  Receipt Date: 20120703
  Transmission Date: 20120928
  Serious: Yes (Hospitalization, Other)
  Sender: FDA-Public Use
  Company Number: ADR-2012-00691

PATIENT
  Sex: Female

DRUGS (1)
  1. BACLOFEN [Suspect]
     Indication: MUSCLE SPASTICITY
     Dosage: SEE B5
     Route: 037

REACTIONS (13)
  - HYPOAESTHESIA ORAL [None]
  - OVERDOSE [None]
  - SOMNAMBULISM [None]
  - SENSATION OF HEAVINESS [None]
  - HEADACHE [None]
  - SWELLING [None]
  - DIPLOPIA [None]
  - PARAESTHESIA [None]
  - DYSPNOEA [None]
  - NAUSEA [None]
  - FEELING ABNORMAL [None]
  - SOMNOLENCE [None]
  - BALANCE DISORDER [None]
